FAERS Safety Report 9331777 (Version 1)
Quarter: 2013Q2

REPORT INFORMATION
  Report Type: Spontaneous
  Country: AU (occurrence: AU)
  Receive Date: 20130605
  Receipt Date: 20130605
  Transmission Date: 20140414
  Serious: Yes (Death, Other)
  Sender: FDA-Public Use
  Company Number: AU-BAXTER-2013BAX020266

PATIENT
  Sex: 0

DRUGS (4)
  1. ENDOXAN CYCLOPHOSPHAMIDE [Suspect]
     Indication: PRODUCT USED FOR UNKNOWN INDICATION
     Route: 042
  2. ENDOXAN CYCLOPHOSPHAMIDE [Suspect]
     Route: 048
  3. PLASMA [Concomitant]
     Indication: PRODUCT USED FOR UNKNOWN INDICATION
  4. IMMUNOGLOBULIN [Concomitant]
     Indication: PRODUCT USED FOR UNKNOWN INDICATION

REACTIONS (6)
  - Intestinal perforation [Fatal]
  - Colitis ischaemic [Fatal]
  - Lung transplant rejection [Unknown]
  - Thrombotic microangiopathy [Unknown]
  - Haematuria [Unknown]
  - Bronchitis [Unknown]
